FAERS Safety Report 11937074 (Version 1)
Quarter: 2016Q1

REPORT INFORMATION
  Report Type: Spontaneous
  Country: US (occurrence: US)
  Receive Date: 20160121
  Receipt Date: 20160121
  Transmission Date: 20160526
  Serious: No
  Sender: FDA-Public Use
  Company Number: US-ELI_LILLY_AND_COMPANY-US201601001596

PATIENT
  Sex: Female
  Weight: 54 kg

DRUGS (4)
  1. RASUVO [Suspect]
     Active Substance: METHOTREXATE SODIUM
     Indication: RHEUMATOID ARTHRITIS
     Dosage: UNK, WEEKLY (1/W)
     Route: 065
     Dates: start: 201504, end: 20151111
  2. PREDNISONE. [Concomitant]
     Active Substance: PREDNISONE
     Dosage: UNK, UNKNOWN
     Route: 065
  3. FORTEO [Suspect]
     Active Substance: TERIPARATIDE
     Indication: RHEUMATOID ARTHRITIS
     Dosage: UNK, QD
     Route: 065
     Dates: start: 201504, end: 20151110
  4. ENBREL [Concomitant]
     Active Substance: ETANERCEPT
     Dosage: UNK, UNKNOWN
     Route: 065

REACTIONS (11)
  - Eye pain [Unknown]
  - Gait disturbance [Unknown]
  - Gastrooesophageal reflux disease [Unknown]
  - Bone pain [Unknown]
  - Abdominal discomfort [Unknown]
  - Feeling abnormal [Unknown]
  - Bone swelling [Unknown]
  - Joint stiffness [Unknown]
  - Chest pain [Unknown]
  - Off label use [Unknown]
  - Groin pain [Unknown]
